FAERS Safety Report 14851791 (Version 1)
Quarter: 2018Q2

REPORT INFORMATION
  Report Type: Spontaneous
  Country: FR (occurrence: FR)
  Receive Date: 20180507
  Receipt Date: 20180507
  Transmission Date: 20180711
  Serious: Yes (Other)
  Sender: FDA-Public Use
  Company Number: FR-MERCK KGAA-2047268

PATIENT
  Age: 42 Year
  Sex: Female

DRUGS (1)
  1. NOVOTHYROX [Suspect]
     Active Substance: LEVOTHYROXINE SODIUM
     Indication: AUTOIMMUNE THYROIDITIS
     Dates: start: 201707, end: 201708

REACTIONS (35)
  - Decreased appetite [Recovering/Resolving]
  - Dysphagia [Recovering/Resolving]
  - Muscle spasms [Not Recovered/Not Resolved]
  - Tachycardia [Not Recovered/Not Resolved]
  - Crying [Recovering/Resolving]
  - Social avoidant behaviour [Recovering/Resolving]
  - Hyperacusis [Recovering/Resolving]
  - Nausea [Recovering/Resolving]
  - Hypothyroidism [Recovering/Resolving]
  - Drug hypersensitivity [Recovering/Resolving]
  - Myopia [Recovering/Resolving]
  - Dizziness [Recovering/Resolving]
  - Dry eye [Recovering/Resolving]
  - Anxiety disorder [Recovering/Resolving]
  - Hyperthyroidism [Recovering/Resolving]
  - Balance disorder [Recovering/Resolving]
  - Dysgeusia [Recovering/Resolving]
  - Asthenia [Recovering/Resolving]
  - Headache [Recovering/Resolving]
  - Hyperhidrosis [Recovering/Resolving]
  - Respiratory disorder [Recovering/Resolving]
  - Gastrointestinal disorder [Recovering/Resolving]
  - Feeling abnormal [Recovering/Resolving]
  - Insomnia [Not Recovered/Not Resolved]
  - Onychoclasis [Recovering/Resolving]
  - Memory impairment [Recovering/Resolving]
  - Constipation [Recovering/Resolving]
  - Fatigue [Recovering/Resolving]
  - Psychiatric symptom [Recovering/Resolving]
  - Diarrhoea [Recovering/Resolving]
  - Dysaesthesia [Recovering/Resolving]
  - Hypotension [Recovering/Resolving]
  - Visual impairment [Recovering/Resolving]
  - Dry skin [Recovering/Resolving]
  - Oedema peripheral [Not Recovered/Not Resolved]

NARRATIVE: CASE EVENT DATE: 2017
